FAERS Safety Report 7223207-7 (Version None)
Quarter: 2011Q1

REPORT INFORMATION
  Report Type: 
  Country: None (occurrence: None)
  Receive Date: 20110112
  Receipt Date: 20100301
  Transmission Date: 20110831
  Serious: No
  Sender: FDA-Public Use
  Company Number: US-ALLERGAN-1002718US

PATIENT
  Age: 50 Year
  Sex: Female

DRUGS (4)
  1. VIROPTIC [Concomitant]
     Indication: ULCERATIVE KERATITIS
  2. GENTAMICIN [Concomitant]
     Indication: EYE DISORDER
  3. RESTASIS [Suspect]
     Indication: DRY EYE
  4. TOBRADEX                           /01042701/ [Concomitant]
     Indication: ULCERATIVE KERATITIS

REACTIONS (3)
  - LACRIMATION INCREASED [None]
  - VISION BLURRED [None]
  - HERPES SIMPLEX [None]
